FAERS Safety Report 8098448-X (Version None)
Quarter: 2012Q1

REPORT INFORMATION
  Report Type: 
  Country: None (occurrence: None)
  Receive Date: 20120131
  Receipt Date: 20120123
  Transmission Date: 20120608
  Serious: Yes (Disabling, Other)
  Sender: FDA-Public Use
  Company Number: US-CELGENEUS-163-21880-11102162

PATIENT
  Sex: Male

DRUGS (11)
  1. METOPROLOL TARTRATE [Concomitant]
     Route: 065
  2. CATAPRES [Concomitant]
     Route: 065
  3. SPIRONOLACTONE [Concomitant]
     Route: 065
  4. CALCIUM CARBONATE [Concomitant]
     Route: 065
  5. REVLIMID [Suspect]
     Dosage: 5 MG  TO 10 MG
     Route: 048
     Dates: start: 20100501
  6. REVLIMID [Suspect]
     Dosage: 5 MG TO 10 MG
     Route: 048
     Dates: start: 20110120, end: 20110921
  7. ACETAMINOPHEN [Concomitant]
     Route: 065
  8. BUSPAR [Concomitant]
     Route: 065
  9. COUMADIN [Concomitant]
     Indication: ATRIAL FIBRILLATION
     Dosage: 2 MILLIGRAM
     Route: 065
  10. DECADRON [Concomitant]
     Dosage: 20 MILLIGRAM
     Route: 065
  11. MELPHALAN HYDROCHLORIDE [Concomitant]
     Route: 065

REACTIONS (2)
  - RENAL FAILURE [None]
  - PROSTATOMEGALY [None]
